FAERS Safety Report 5997905-7 (Version None)
Quarter: 2008Q4

REPORT INFORMATION
  Report Type: 
  Country: None (occurrence: None)
  Receive Date: 20081212
  Receipt Date: 20081124
  Transmission Date: 20090506
  Serious: No
  Sender: FDA-Public Use
  Company Number: US-ABBOTT-08P-163-0489852-00

PATIENT
  Sex: Female

DRUGS (5)
  1. HUMIRA [Suspect]
     Indication: PSORIASIS
     Route: 058
     Dates: start: 20080401, end: 20081022
  2. HUMIRA [Suspect]
     Indication: PSORIATIC ARTHROPATHY
  3. ACETAMINOPHEN W/ PROPOXYPHENE HCL [Concomitant]
     Indication: PAIN
     Route: 048
  4. MOMETASONE FUROATE [Concomitant]
     Indication: HYPERSENSITIVITY
     Route: 045
  5. TOPICAL STEROID [Concomitant]
     Indication: DRUG USE FOR UNKNOWN INDICATION
     Route: 061

REACTIONS (3)
  - ARTHRALGIA [None]
  - MYALGIA [None]
  - TENDONITIS [None]
